FAERS Safety Report 5220936-1 (Version None)
Quarter: 2007Q1

REPORT INFORMATION
  Report Type: 
  Country: None (occurrence: None)
  Receive Date: 20070125
  Receipt Date: 20070125
  Transmission Date: 20070707
  Serious: Yes (Life-Threatening, Hospitalization)
  Sender: FDA-Public Use
  Company Number: None

PATIENT
  Age: 26 Year
  Sex: Male
  Weight: 127.0072 kg

DRUGS (9)
  1. CHANTIX [Suspect]
     Indication: SMOKING CESSATION THERAPY
     Dosage: 1MG BID INJ
     Dates: start: 20070103, end: 20070122
  2. ASMANEX TWISTHALER [Concomitant]
  3. SINGULAIR [Concomitant]
  4. ALLEGRA-D 12 HOUR [Concomitant]
  5. ZYRTEC [Concomitant]
  6. ASTELIN [Concomitant]
  7. FLONASE [Concomitant]
  8. ALBUTEROL [Concomitant]
  9. PEPCID [Concomitant]

REACTIONS (4)
  - HAEMOPTYSIS [None]
  - IMPAIRED WORK ABILITY [None]
  - PULMONARY EMBOLISM [None]
  - PULMONARY HAEMORRHAGE [None]
